FAERS Safety Report 11875483 (Version 1)
Quarter: 2015Q4

REPORT INFORMATION
  Report Type: Spontaneous
  Country: IT (occurrence: IT)
  Receive Date: 20151229
  Receipt Date: 20151229
  Transmission Date: 20160305
  Serious: Yes (Hospitalization, Other)
  Sender: FDA-Public Use
  Company Number: PHHY2015IT168927

PATIENT
  Age: 4 Year
  Sex: Female

DRUGS (6)
  1. DEPAKIN [Suspect]
     Active Substance: VALPROATE SODIUM
     Indication: EPILEPSY
     Dosage: UNK
     Route: 048
  2. INOVELON [Suspect]
     Active Substance: RUFINAMIDE
     Dosage: 600 MG, UNK
     Route: 048
     Dates: start: 20151201, end: 20151201
  3. TOLEP [Suspect]
     Active Substance: OXCARBAZEPINE
     Indication: EPILEPSY
     Dosage: UNK
     Route: 048
  4. INOVELON [Suspect]
     Active Substance: RUFINAMIDE
     Indication: EPILEPSY
     Dosage: UNK
     Route: 048
  5. TOLEP [Suspect]
     Active Substance: OXCARBAZEPINE
     Dosage: 900 MG, UNK
     Route: 048
     Dates: start: 20151201, end: 20151201
  6. DEPAKIN [Suspect]
     Active Substance: VALPROATE SODIUM
     Dosage: 500 MG, UNK
     Route: 048
     Dates: start: 20151201, end: 20151201

REACTIONS (4)
  - Hyperammonaemia [Recovered/Resolved]
  - Accidental overdose [Recovered/Resolved]
  - Somnolence [Recovered/Resolved]
  - Medication error [Recovered/Resolved]

NARRATIVE: CASE EVENT DATE: 20151201
